FAERS Safety Report 20632542 (Version 1)
Quarter: 2022Q1

REPORT INFORMATION
  Report Type: Spontaneous
  Country: US (occurrence: None)
  Receive Date: 20220324
  Receipt Date: 20220324
  Transmission Date: 20220424
  Serious: No
  Sender: FDA-Public Use
  Company Number: None

PATIENT

DRUGS (2)
  1. XYLOCAINE MPF [Suspect]
     Active Substance: LIDOCAINE HYDROCHLORIDE
  2. SENSORCAINE MPF [Suspect]
     Active Substance: BUPIVACAINE HYDROCHLORIDE

REACTIONS (3)
  - Product appearance confusion [None]
  - Product packaging confusion [None]
  - Product label confusion [None]
